FAERS Safety Report 8912020 (Version 2)
Quarter: 2012Q4

REPORT INFORMATION
  Report Type: 
  Country: GB (occurrence: GB)
  Receive Date: 20121115
  Receipt Date: 20121211
  Transmission Date: 20130627
  Serious: Yes (Life-Threatening, Hospitalization)
  Sender: FDA-Public Use
  Company Number: GB-WATSON-2012-18997

PATIENT
  Age: 72 Year

DRUGS (10)
  1. CEFUROXIME (UNKNOWN) [Suspect]
     Indication: PRODUCT USED FOR UNKNOWN INDICATION
     Dosage: 1.5g total. Patient had one stat dose
     Route: 042
     Dates: start: 20110308, end: 20110308
  2. CEFTRIAXONE [Suspect]
     Indication: PANCREATITIS
     Dosage: 1 g, daily. Patient had one dose.
     Route: 042
     Dates: start: 20110308, end: 20110308
  3. ERYTHROMYCIN  (UNKNOWN) [Suspect]
     Indication: PRODUCT USED FOR UNKNOWN INDICATION
     Dosage: 125 mg, tid
     Route: 048
     Dates: start: 20110319, end: 20110325
  4. AMOXICILLIN\CLAVULANATE POTASSIUM [Suspect]
     Indication: SEPSIS
     Dosage: 1.2 g, tid
     Route: 042
     Dates: start: 20110328, end: 20110403
  5. TRIMETHOPRIM [Suspect]
     Indication: URINARY TRACT INFECTION
     Dosage: 200 mg, bid. patient had 2 doses
     Route: 048
     Dates: start: 20110305, end: 20110305
  6. METRONIDAZOLE [Suspect]
     Indication: PRODUCT USED FOR UNKNOWN INDICATION
     Dosage: 500 mg, tid. Patient had one dose
     Route: 042
     Dates: start: 20110308, end: 20110308
  7. PIPERACILLIN AND TAZOBACTAM [Suspect]
     Indication: PNEUMONIA
     Dosage: 4.5 g, tid
     Route: 042
     Dates: start: 20110420, end: 20110425
  8. MEROPENEM [Suspect]
     Indication: PANCREATITIS NECROTISING
     Dosage: 1 g, tid
     Route: 042
     Dates: start: 20110309, end: 20110313
  9. FLUCLOXACILLIN [Suspect]
     Indication: PRODUCT USED FOR UNKNOWN INDICATION
     Dosage: 500 mg, qid
     Route: 048
     Dates: start: 20100908
  10. TAZOBACTAM [Suspect]
     Indication: PRODUCT USED FOR UNKNOWN INDICATION
     Dosage: unknown
     Route: 042

REACTIONS (1)
  - Clostridium test positive [Recovered/Resolved]
